FAERS Safety Report 6618015-1 (Version None)
Quarter: 2010Q1

REPORT INFORMATION
  Report Type: 
  Country: None (occurrence: None)
  Receive Date: 20100308
  Receipt Date: 20100302
  Transmission Date: 20100710
  Serious: Yes (Hospitalization)
  Sender: FDA-Public Use
  Company Number: FR-BRISTOL-MYERS SQUIBB COMPANY-14818405

PATIENT
  Age: 66 Year
  Sex: Male
  Weight: 91 kg

DRUGS (11)
  1. COAPROVEL TABS 300MG/ 25MG [Suspect]
     Indication: HYPERTENSION
     Dosage: 1 DF = 300MG/25MG
     Dates: start: 20090916
  2. GLUCOPHAGE [Suspect]
     Dosage: TABS
  3. COLECALCIFEROL [Suspect]
  4. CAPTOPRIL AND HYDROCHLOROTHIAZIDE [Suspect]
  5. ASPEGIC 1000 [Suspect]
  6. JANUVIA [Suspect]
     Indication: TYPE 2 DIABETES MELLITUS
     Dates: start: 20090916
  7. AMAREL [Suspect]
     Indication: TYPE 2 DIABETES MELLITUS
     Dates: start: 20090916
  8. RILMENIDINE [Suspect]
  9. AMLOR [Suspect]
  10. TAHOR [Suspect]
  11. DAONIL [Suspect]

REACTIONS (5)
  - BENIGN PROSTATIC HYPERPLASIA [None]
  - BLOOD GLUCOSE FLUCTUATION [None]
  - PANCREATITIS ACUTE [None]
  - RENAL FAILURE ACUTE [None]
  - VITAMIN D DEFICIENCY [None]
